FAERS Safety Report 4765511-8 (Version None)
Quarter: 2005Q3

REPORT INFORMATION
  Report Type: 
  Country: None (occurrence: None)
  Receive Date: 20050912
  Receipt Date: 20050901
  Transmission Date: 20060218
  Serious: Yes (Other)
  Sender: FDA-Public Use
  Company Number: US-JNJFOC-20050901097

PATIENT
  Sex: Female

DRUGS (2)
  1. REMICADE [Suspect]
     Route: 042
  2. REMICADE [Suspect]
     Indication: CROHN'S DISEASE
     Route: 042

REACTIONS (7)
  - DIABETES MELLITUS [None]
  - FUNGAL INFECTION [None]
  - HEPATITIS [None]
  - LUPUS-LIKE SYNDROME [None]
  - PARAESTHESIA [None]
  - VISUAL DISTURBANCE [None]
  - WEIGHT DECREASED [None]
